FAERS Safety Report 6019669-3 (Version None)
Quarter: 2008Q4

REPORT INFORMATION
  Report Type: 
  Country: None (occurrence: None)
  Receive Date: 20081224
  Receipt Date: 20081217
  Transmission Date: 20090506
  Serious: Yes (Other)
  Sender: FDA-Public Use
  Company Number: RO-AMGEN-US299449

PATIENT
  Age: 55 Year
  Sex: Male

DRUGS (2)
  1. ENBREL [Suspect]
     Indication: POLYARTHRITIS
     Route: 058
     Dates: start: 20071001, end: 20080728
  2. ENBREL [Suspect]
     Indication: PULMONARY FIBROSIS

REACTIONS (1)
  - TUBERCULOSIS [None]
